FAERS Safety Report 18065465 (Version 1)
Quarter: 2020Q3

REPORT INFORMATION
  Report Type: Spontaneous
  Country: DE (occurrence: DE)
  Receive Date: 20200724
  Receipt Date: 20200724
  Transmission Date: 20201103
  Serious: Yes (Hospitalization, Other)
  Sender: FDA-Public Use
  Company Number: DE-ABBVIE-20K-062-3497144-00

PATIENT
  Age: 87 Year
  Sex: Female

DRUGS (9)
  1. IMBRUVICA [Suspect]
     Active Substance: IBRUTINIB
     Indication: CHRONIC LYMPHOCYTIC LEUKAEMIA
     Dosage: 2X 140 MG MORGENS (2?0?0?)
     Route: 048
     Dates: end: 202006
  2. L?THYROXIN [Concomitant]
     Active Substance: LEVOTHYROXINE SODIUM
     Indication: PRODUCT USED FOR UNKNOWN INDICATION
     Dosage: 0,5 MORGENS (0,5?0?0)
     Route: 048
  3. METOHEXAL [Concomitant]
     Active Substance: METOPROLOL
     Indication: PRODUCT USED FOR UNKNOWN INDICATION
     Dosage: 2?0?0  (2 MORGENS)
     Route: 048
  4. TOREM [Concomitant]
     Active Substance: TORSEMIDE
     Indication: PRODUCT USED FOR UNKNOWN INDICATION
     Dosage: 1?0?0 (1X MORGENS)
     Route: 048
  5. PANTOPRAZOL [Concomitant]
     Active Substance: PANTOPRAZOLE SODIUM
     Indication: PRODUCT USED FOR UNKNOWN INDICATION
     Dosage: 1?0?0 (1X MORGENS)
     Route: 048
  6. ACICLOVIR [Concomitant]
     Active Substance: ACYCLOVIR
     Indication: PRODUCT USED FOR UNKNOWN INDICATION
     Dosage: 1?0?0 (1X MORGENS)
     Route: 048
  7. ELIQUIS [Concomitant]
     Active Substance: APIXABAN
     Indication: PRODUCT USED FOR UNKNOWN INDICATION
     Dosage: 1?0?0 (1X MORGENS)
     Route: 048
  8. VALSARTAN. [Concomitant]
     Active Substance: VALSARTAN
     Indication: PRODUCT USED FOR UNKNOWN INDICATION
     Dosage: 1?0?0 (1X MORGENS)
     Route: 048
  9. SIMVASTATIN. [Concomitant]
     Active Substance: SIMVASTATIN
     Indication: PRODUCT USED FOR UNKNOWN INDICATION
     Dosage: 1X ABENDS (0?0?1)
     Route: 048

REACTIONS (23)
  - Haematoma [Unknown]
  - Hypertension [Unknown]
  - Respiratory tract infection [Unknown]
  - Hypoaesthesia [Unknown]
  - Tachycardia [Unknown]
  - Product substitution issue [Unknown]
  - Swollen tongue [Unknown]
  - Pharyngeal swelling [Unknown]
  - Lip swelling [Unknown]
  - Diarrhoea [Unknown]
  - Hypersensitivity [Unknown]
  - Respiratory distress [Unknown]
  - Peripheral swelling [Unknown]
  - Skin exfoliation [Unknown]
  - Vision blurred [Unknown]
  - Vomiting [Unknown]
  - Nausea [Unknown]
  - Arrhythmia [Unknown]
  - Urticaria [Unknown]
  - Joint swelling [Unknown]
  - Muscle spasms [Unknown]
  - Dermatitis bullous [Unknown]
  - Asthenia [Unknown]

NARRATIVE: CASE EVENT DATE: 2020
